FAERS Safety Report 5763894-3 (Version None)
Quarter: 2008Q2

REPORT INFORMATION
  Report Type: 
  Country: None (occurrence: None)
  Receive Date: 20080606
  Receipt Date: 20080606
  Transmission Date: 20081010
  Serious: No
  Sender: FDA-Public Use
  Company Number: None

PATIENT
  Sex: Male

DRUGS (1)
  1. TAXOTERE [Suspect]
     Indication: GASTRIC CANCER
     Dosage: 130 MG IV DRIP
     Route: 041

REACTIONS (5)
  - BACK PAIN [None]
  - BURNING SENSATION [None]
  - CHEST PAIN [None]
  - FLUSHING [None]
  - PAIN [None]
